FAERS Safety Report 4583416-2 (Version None)
Quarter: 2005Q1

REPORT INFORMATION
  Report Type: 
  Country: None (occurrence: None)
  Receive Date: 20050211
  Receipt Date: 20050131
  Transmission Date: 20050727
  Serious: Yes (Hospitalization)
  Sender: FDA-Public Use
  Company Number: 2005024283

PATIENT
  Age: 60 Year
  Sex: Male

DRUGS (7)
  1. CELEBRA [Suspect]
     Indication: ANKYLOSING SPONDYLITIS
     Dosage: 200 MG (200 MG, 1 IN 1 D), ORAL
     Route: 048
     Dates: start: 20040101, end: 20041128
  2. ESCITALOPRAM (ESCITALOPRAM) [Suspect]
     Indication: ILL-DEFINED DISORDER
     Dosage: 10 MG (10 MG, 1 IN 1 D), ORAL
     Route: 048
  3. CHLORPROTHIXENE HYDROCHLORIDE (CHLORPROTHIXENE HYDROCHLORIDE) [Concomitant]
  4. SYMBICORT TURBUHALER ^DRACO^ (BUDESONIDE, FORMOTEROL FUMARATE) [Concomitant]
  5. CODEINE PHOSPHATE AND ACETAMINOPHEN [Concomitant]
  6. METOPROLOL SUCCINATE [Concomitant]
  7. TRAMADOL HCL [Concomitant]

REACTIONS (2)
  - ANAEMIA [None]
  - GASTRIC ULCER HAEMORRHAGE [None]
